FAERS Safety Report 5267329-9 (Version None)
Quarter: 2007Q1

REPORT INFORMATION
  Report Type: 
  Country: None (occurrence: None)
  Receive Date: 20070313
  Receipt Date: 20070227
  Transmission Date: 20070707
  Serious: Yes (Hospitalization)
  Sender: FDA-Public Use
  Company Number: E3810-00347-CLI-US

PATIENT
  Age: 38 Year
  Sex: Male
  Weight: 78 kg

DRUGS (6)
  1. RABEPRAZOLE SODIUM [Suspect]
     Indication: DYSPEPSIA
     Dosage: 1 TABLET, 1 IN 1 D, ORAL
     Route: 048
     Dates: start: 20060804
  2. VANCOMYCIN [Concomitant]
  3. UNKNOWN ANTIBIOTIC (ANITIBIOTICS) [Concomitant]
  4. PANAPHIL OINTMENT [Concomitant]
  5. UNKNOWN MEDICATION [Concomitant]
  6. CIPRO [Concomitant]

REACTIONS (3)
  - CONDITION AGGRAVATED [None]
  - DECUBITUS ULCER [None]
  - GASTROOESOPHAGEAL REFLUX DISEASE [None]
